FAERS Safety Report 9537988 (Version 1)
Quarter: 2013Q3

REPORT INFORMATION
  Report Type: Spontaneous
  Country: US (occurrence: US)
  Receive Date: 20130919
  Receipt Date: 20130919
  Transmission Date: 20140515
  Serious: Yes (Other)
  Sender: FDA-Public Use
  Company Number: US-RB-058447-13

PATIENT
  Age: 22 Year
  Sex: Female

DRUGS (4)
  1. SUBOXONE FILM [Suspect]
     Indication: DRUG DEPENDENCE
     Dosage: SUBOXONE FILM; THE PATIENT WAS CUTTING THE FILM TO ACHIEVE THE DOSING
     Route: 060
     Dates: start: 2010
  2. GENERIC BUPRENORPHINE/NALOXONE [Suspect]
     Dosage: THE PATIENT WAS CUTTING THE TABLETS TO ACHIEVE DOSING
     Route: 060
     Dates: end: 201308
  3. GENERIC BUPRENORPHINE/NALOXONE [Suspect]
     Indication: DRUG DEPENDENCE
     Dosage: DOSING DETAILS UNKNOWN; THE PATIENT WAS CUTTING THE TABLETS IN ORDER TO MAKE THEM LAST LONGER
     Route: 060
     Dates: start: 201308, end: 201309
  4. SEROQUEL [Concomitant]
     Indication: SCHIZOPHRENIA
     Dosage: DOSING DETAILS UNKNOWN
     Route: 048

REACTIONS (11)
  - Off label use [Recovered/Resolved]
  - Wrong technique in drug usage process [Recovered/Resolved]
  - Convulsion [Recovered/Resolved]
  - Underdose [Recovered/Resolved]
  - Drug withdrawal syndrome [Not Recovered/Not Resolved]
  - Malaise [Not Recovered/Not Resolved]
  - Feeling abnormal [Not Recovered/Not Resolved]
  - Pain in extremity [Not Recovered/Not Resolved]
  - Insomnia [Not Recovered/Not Resolved]
  - Unevaluable event [Not Recovered/Not Resolved]
  - Vomiting [Not Recovered/Not Resolved]
